FAERS Safety Report 14744631 (Version 1)
Quarter: 2018Q2

REPORT INFORMATION
  Report Type: Spontaneous
  Country: US (occurrence: US)
  Receive Date: 20180405
  Receipt Date: 20180405
  Transmission Date: 20180711
  Serious: Yes (Hospitalization)
  Sender: FDA-Public Use
  Company Number: None

PATIENT
  Age: 37 Year
  Sex: Female

DRUGS (5)
  1. HUMIRA [Suspect]
     Active Substance: ADALIMUMAB
     Indication: RHEUMATOID ARTHRITIS
     Route: 058
     Dates: start: 20170630
  2. OXYCODONE [Concomitant]
     Active Substance: OXYCODONE
  3. CELEBREX [Concomitant]
     Active Substance: CELECOXIB
  4. CYCLEOBENZAPR [Concomitant]
     Indication: RHEUMATOID ARTHRITIS
  5. AMOXICILLIN. [Concomitant]
     Active Substance: AMOXICILLIN

REACTIONS (1)
  - Surgery [None]

NARRATIVE: CASE EVENT DATE: 20180304
